FAERS Safety Report 10209309 (Version 1)
Quarter: 2014Q2

REPORT INFORMATION
  Report Type: Report from Study
  Country: AU (occurrence: AU)
  Receive Date: 20140530
  Receipt Date: 20140530
  Transmission Date: 20141212
  Serious: Yes (Life-Threatening, Hospitalization, Other)
  Sender: FDA-Public Use
  Company Number: AU-ASTRAZENECA-2014SE36864

PATIENT
  Age: 0 Day
  Sex: Male
  Weight: 4 kg

DRUGS (7)
  1. QUETIAPINE IR [Suspect]
     Indication: PSYCHOTIC DISORDER
     Route: 064
  2. MIRTAZAPINE [Suspect]
     Indication: ANTIDEPRESSANT THERAPY
     Dosage: 105 MG, PREPREGNANCY
     Route: 064
  3. XANAX [Suspect]
     Indication: ANXIETY DISORDER
     Dosage: 2.5 TO 3.5 MG, DAILY, PREPREGNANCY START
     Route: 064
  4. PERIACTIN [Suspect]
     Indication: MIGRAINE
     Dosage: 8 MG DAILY, STARTED FROM 24/40 WKS
     Route: 064
  5. ELEVIT [Concomitant]
     Indication: VITAMIN SUPPLEMENTATION
     Dosage: 1 TABLET DAILY FROM 1ST TRIMESTER TO BIRTH
     Route: 064
  6. VIT D [Concomitant]
     Indication: VITAMIN SUPPLEMENTATION
     Dosage: 1 TABLET DAILY FROM 1ST TRIMESTER TO BIRTH
     Route: 064
  7. PANADEINE FORTE [Concomitant]
     Indication: PELVIC DISCOMFORT
     Dosage: 2 TABLETS AS REQUIRED FROM 1ST TRIMESTER TO BIRTH
     Route: 064

REACTIONS (2)
  - Foetal distress syndrome [Recovered/Resolved]
  - Respiratory distress [Recovered/Resolved]
